FAERS Safety Report 18775067 (Version 3)
Quarter: 2024Q1

REPORT INFORMATION
  Report Type: Spontaneous
  Country: US (occurrence: US)
  Receive Date: 20210122
  Receipt Date: 20240315
  Transmission Date: 20240410
  Serious: Yes (Death)
  Sender: FDA-Public Use
  Company Number: US-SECURA BIO, INC.-2020US008857

PATIENT

DRUGS (1)
  1. COPIKTRA [Suspect]
     Active Substance: DUVELISIB
     Indication: Chronic lymphocytic leukaemia
     Dosage: 25 MG, BID
     Route: 048
     Dates: start: 20201214, end: 20210109

REACTIONS (2)
  - Hepatic failure [Fatal]
  - Feeling abnormal [Unknown]
